FAERS Safety Report 22216625 (Version 1)
Quarter: 2023Q2

REPORT INFORMATION
  Report Type: Report from Study
  Country: US (occurrence: US)
  Receive Date: 20230417
  Receipt Date: 20230417
  Transmission Date: 20230721
  Serious: Yes (Other)
  Sender: FDA-Public Use
  Company Number: US-ABBVIE-4722802

PATIENT
  Age: 24 Year
  Sex: Female

DRUGS (2)
  1. HUMIRA [Suspect]
     Active Substance: ADALIMUMAB
     Indication: Hidradenitis
     Route: 058
     Dates: start: 202203, end: 202302
  2. HUMIRA [Suspect]
     Active Substance: ADALIMUMAB
     Route: 058

REACTIONS (4)
  - Tibia fracture [Recovering/Resolving]
  - Hidradenitis [Recovered/Resolved]
  - Fall [Recovering/Resolving]
  - Hidradenitis [Not Recovered/Not Resolved]

NARRATIVE: CASE EVENT DATE: 20230201
